FAERS Safety Report 7052439-6 (Version None)
Quarter: 2010Q4

REPORT INFORMATION
  Report Type: 
  Country: None (occurrence: None)
  Receive Date: 20101019
  Receipt Date: 20101018
  Transmission Date: 20110411
  Serious: Yes (Hospitalization)
  Sender: FDA-Public Use
  Company Number: IT-WYE-G06410510

PATIENT
  Sex: Male

DRUGS (1)
  1. PREVENAR [Suspect]
     Indication: IMMUNISATION
     Route: 030
     Dates: start: 20100707, end: 20100707

REACTIONS (5)
  - ASTHENIA [None]
  - HAND-FOOT-AND-MOUTH DISEASE [None]
  - HYPOTONIC-HYPORESPONSIVE EPISODE [None]
  - SOMNOLENCE [None]
  - VOMITING [None]
